FAERS Safety Report 6694405-6 (Version None)
Quarter: 2010Q2

REPORT INFORMATION
  Report Type: 
  Country: None (occurrence: None)
  Receive Date: 20100423
  Receipt Date: 20100412
  Transmission Date: 20101027
  Serious: Yes (Hospitalization, Other)
  Sender: FDA-Public Use
  Company Number: BE-JNJFOC-20100306957

PATIENT
  Age: 53 Year
  Sex: Male

DRUGS (3)
  1. REMICADE [Suspect]
     Indication: CROHN'S DISEASE
     Dosage: INFUSIONS FOR APPROXIMATELY ONE YEAR ON UNSPECIFIED DATES; 14 INFUSIONS RECEIVED
     Route: 042
  2. HUMIRA [Suspect]
     Indication: CROHN'S DISEASE
     Dosage: ON THERAPY THREE MONTHS
  3. PENTASA [Concomitant]

REACTIONS (2)
  - DIFFUSE LARGE B-CELL LYMPHOMA [None]
  - THERAPEUTIC RESPONSE DECREASED [None]
